FAERS Safety Report 22320801 (Version 1)
Quarter: 2023Q2

REPORT INFORMATION
  Report Type: Spontaneous
  Country: GB (occurrence: GB)
  Receive Date: 20230515
  Receipt Date: 20230515
  Transmission Date: 20230722
  Serious: Yes (Other)
  Sender: FDA-Public Use
  Company Number: GB-MHRA-MED-202305092128588880-GZCWS

PATIENT
  Age: 4 Year
  Sex: Male
  Weight: 20 kg

DRUGS (1)
  1. MONTELUKAST [Suspect]
     Active Substance: MONTELUKAST SODIUM
     Indication: Asthma
     Dosage: 1 DOSAGE FORM QD (NIGHT)
     Route: 065
     Dates: end: 202304

REACTIONS (3)
  - Mood altered [Unknown]
  - Aggression [Unknown]
  - Self esteem decreased [Unknown]

NARRATIVE: CASE EVENT DATE: 20220101
